FAERS Safety Report 9906764 (Version 1)
Quarter: 2014Q1

REPORT INFORMATION
  Report Type: Spontaneous
  Country: GB (occurrence: GB)
  Receive Date: 20140218
  Receipt Date: 20140218
  Transmission Date: 20141002
  Serious: Yes (Hospitalization)
  Sender: FDA-Public Use
  Company Number: GB-PFIZER INC-2014043044

PATIENT
  Age: 60 Year
  Sex: Female
  Weight: 65 kg

DRUGS (4)
  1. IRINOTECAN HCL [Suspect]
     Dosage: UNK
     Route: 042
     Dates: start: 20131003
  2. NEULASTA [Suspect]
     Indication: CHEMOTHERAPY
     Dosage: 2/52
     Route: 042
     Dates: start: 20131003, end: 20131010
  3. FLUOROURACIL [Concomitant]
     Dosage: UNK
     Route: 042
  4. FOLINIC ACID [Concomitant]
     Dosage: UNK
     Route: 042

REACTIONS (4)
  - Neutropenic sepsis [Recovered/Resolved]
  - Febrile neutropenia [Recovered/Resolved]
  - Malaise [Unknown]
  - Body temperature increased [Unknown]
